FAERS Safety Report 24111718 (Version 4)
Quarter: 2024Q3

REPORT INFORMATION
  Report Type: Report from Study
  Country: US (occurrence: US)
  Receive Date: 20240718
  Receipt Date: 20240806
  Transmission Date: 20241016
  Serious: Yes (Other)
  Sender: ABBVIE
  Company Number: US-ABBVIE-5840927

PATIENT
  Age: 47 Year
  Sex: Female

DRUGS (5)
  1. BOTOX [Suspect]
     Active Substance: ONABOTULINUMTOXINA
     Indication: Muscle spasticity
     Dosage: TIME INTERVAL: AS NECESSARY: START DATE - 2008 OR EARLY 2009, FREQUENCY- ABOUT EVERY 12 WEEKS
     Route: 065
  2. BOTOX [Suspect]
     Active Substance: ONABOTULINUMTOXINA
     Indication: Muscle spasticity
     Dosage: TIME INTERVAL: AS NECESSARY: STOP DATE- MAYBE 2014, 2015, SOMETHING LIKE THAT, FREQUENCY- ABOUT E...
     Route: 065
  3. BUPIVACAINE;LIDOCAINE [Concomitant]
     Indication: Muscle spasticity
  4. BACLOFEN [Concomitant]
     Active Substance: BACLOFEN
     Indication: Muscle spasticity
     Dosage: BACLOFEN PUMP ITB
  5. XEOMIN [Concomitant]
     Active Substance: INCOBOTULINUMTOXINA
     Indication: Product used for unknown indication

REACTIONS (19)
  - Foot deformity [Unknown]
  - Hyperreflexia [Unknown]
  - Arthralgia [Unknown]
  - Therapeutic response shortened [Unknown]
  - Muscle spasticity [Unknown]
  - Seizure [Unknown]
  - Pain [Unknown]
  - Muscle rigidity [Unknown]
  - Fracture [Unknown]
  - Neck pain [Unknown]
  - Medical device site pain [Unknown]
  - Headache [Unknown]
  - Musculoskeletal pain [Unknown]
  - Procedural haemorrhage [Unknown]
  - Incision site swelling [Unknown]
  - Musculoskeletal chest pain [Unknown]
  - Asthenia [Unknown]
  - Fluid retention [Unknown]
  - Injection site reaction [Unknown]
